FAERS Safety Report 20318940 (Version 3)
Quarter: 2022Q1

REPORT INFORMATION
  Report Type: Report from Study
  Country: ES (occurrence: ES)
  Receive Date: 20220110
  Receipt Date: 20220208
  Transmission Date: 20220423
  Serious: Yes (Hospitalization)
  Sender: FDA-Public Use
  Company Number: ES-PFIZER INC-202101879077

PATIENT
  Age: 4 Year
  Sex: Female

DRUGS (17)
  1. INOTUZUMAB OZOGAMICIN [Suspect]
     Active Substance: INOTUZUMAB OZOGAMICIN
     Indication: Acute lymphocytic leukaemia
     Dosage: 0.3 MG (CUMULATIVE DOSE 1.08MG)
     Route: 042
     Dates: start: 20211203, end: 20211220
  2. METHYLPREDNISOLONE SODIUM SUCCINATE [Suspect]
     Active Substance: METHYLPREDNISOLONE SODIUM SUCCINATE
     Indication: Acute lymphocytic leukaemia
     Dosage: 14 MG (CUMULATIVE DOSE 14 MG)
     Route: 042
     Dates: start: 20211213, end: 20211213
  3. VINCRISTINE SULFATE [Suspect]
     Active Substance: VINCRISTINE SULFATE
     Indication: Acute lymphocytic leukaemia
     Dosage: 0.9 MG (CUMULATIVE DOSE 2.7 MG)
     Route: 042
     Dates: start: 20211205, end: 20211222
  4. DEXAMETHASONE [Suspect]
     Active Substance: DEXAMETHASONE
     Indication: Acute lymphocytic leukaemia
     Dosage: 3 MG (CUMULATIVE DOSE 60 MG)
     Route: 042
     Dates: start: 20211203, end: 20211224
  5. METHOTREXATE SODIUM [Concomitant]
     Active Substance: METHOTREXATE SODIUM
     Indication: Acute lymphocytic leukaemia
     Dosage: 12 MG (CUMULATIVE DOSE 24 MG)
     Route: 037
     Dates: start: 20211202, end: 20211213
  6. CYTARABINE [Concomitant]
     Active Substance: CYTARABINE
     Indication: Acute lymphocytic leukaemia
     Dosage: 24 MG (CUMULATIVE DOSE 48 MG)
     Route: 037
     Dates: start: 20211202, end: 20211213
  7. HYDROCORTISONE [Concomitant]
     Active Substance: HYDROCORTISONE
     Indication: Acute lymphocytic leukaemia
     Dosage: 12 MG (CUMULATIVE DOSE 24 MG)
     Route: 037
     Dates: start: 20211202, end: 20211213
  8. DEXAMETHASONE [Concomitant]
     Active Substance: DEXAMETHASONE
     Indication: Acute lymphocytic leukaemia
     Dosage: UNK
     Route: 048
  9. PEGASPARGASE [Concomitant]
     Active Substance: PEGASPARGASE
     Indication: Acute lymphocytic leukaemia
     Dosage: UNK
     Route: 042
  10. ACYCLOVIR [Concomitant]
     Active Substance: ACYCLOVIR
     Indication: Prophylaxis
     Dosage: 592 MG
     Route: 048
  11. MOVICOL [Concomitant]
     Active Substance: POLYETHYLENE GLYCOL 3350\POTASSIUM CHLORIDE\SODIUM BICARBONATE\SODIUM CHLORIDE
     Indication: Constipation prophylaxis
     Dosage: 6.9 G
     Route: 048
     Dates: start: 20211222
  12. CIPROFLOXACIN [Concomitant]
     Active Substance: CIPROFLOXACIN
     Indication: Antibiotic prophylaxis
     Dosage: 300 MG
     Route: 048
     Dates: start: 20211214
  13. OMEPRAZOLE [Concomitant]
     Active Substance: OMEPRAZOLE
     Indication: Prophylaxis
     Dosage: 14 MG
     Route: 048
     Dates: start: 20211222, end: 20211226
  14. HYDROCORTISONE [Concomitant]
     Active Substance: HYDROCORTISONE
     Indication: Prophylaxis
     Dosage: 6 MG
     Route: 048
     Dates: start: 20211225
  15. URSODIOL [Concomitant]
     Active Substance: URSODIOL
     Indication: Prophylaxis
     Dosage: 210 MG
     Route: 048
     Dates: start: 20211208
  16. PENTAMIDINE [Concomitant]
     Active Substance: PENTAMIDINE
     Indication: Prophylaxis
     Dosage: 60 MG, EVERY 3 WEEKS
     Route: 042
     Dates: start: 20211214, end: 20211214
  17. AMFOTERICINA [Concomitant]
     Indication: Prophylaxis
     Dosage: 40 MG, 2X/WEEK
     Route: 042
     Dates: start: 20211125

REACTIONS (1)
  - Febrile neutropenia [Recovered/Resolved]

NARRATIVE: CASE EVENT DATE: 20211226
